FAERS Safety Report 7183737-3 (Version None)
Quarter: 2010Q4

REPORT INFORMATION
  Report Type: 
  Country: None (occurrence: None)
  Receive Date: 20101220
  Receipt Date: 20101220
  Transmission Date: 20110411
  Serious: Yes (Hospitalization)
  Sender: FDA-Public Use
  Company Number: None

PATIENT
  Age: 65 Year
  Sex: Female
  Weight: 75.4 kg

DRUGS (12)
  1. COUMADIN [Suspect]
     Indication: PULMONARY EMBOLISM
     Dosage: 7.5MG DAILY PO (CHRONIC USE WITH RECENT INCREASE)
     Route: 048
  2. CIPRO [Suspect]
     Indication: URINARY TRACT INFECTION
     Dosage: 500MG BID PO
     Route: 048
     Dates: start: 20100702
  3. ACTOS [Concomitant]
  4. CRESTOR [Concomitant]
  5. COZAAR [Concomitant]
  6. ATENOLOL [Concomitant]
  7. PREVACID [Concomitant]
  8. GLUCOVANCE [Concomitant]
  9. PERCOCET [Concomitant]
  10. LORTAB [Concomitant]
  11. LORAZEPAM [Concomitant]
  12. COMPAZINE [Concomitant]

REACTIONS (6)
  - ANAEMIA [None]
  - COAGULOPATHY [None]
  - EPISTAXIS [None]
  - HAEMATOCHEZIA [None]
  - HAEMATURIA [None]
  - INTERNATIONAL NORMALISED RATIO INCREASED [None]
